FAERS Safety Report 5571654-1 (Version None)
Quarter: 2007Q4

REPORT INFORMATION
  Report Type: 
  Country: None (occurrence: None)
  Receive Date: 20071221
  Receipt Date: 20071119
  Transmission Date: 20080405
  Serious: No
  Sender: FDA-Public Use
  Company Number: US-BAYER-200714941NA

PATIENT
  Sex: Female

DRUGS (1)
  1. YAZ [Suspect]
     Indication: UNEVALUABLE EVENT
     Route: 048
     Dates: start: 20071001

REACTIONS (1)
  - VAGINAL HAEMORRHAGE [None]
